FAERS Safety Report 5585622-7 (Version None)
Quarter: 2007Q4

REPORT INFORMATION
  Report Type: 
  Country: None (occurrence: None)
  Receive Date: 20071204
  Receipt Date: 20071012
  Transmission Date: 20080405
  Serious: Yes (Other)
  Sender: FDA-Public Use
  Company Number: 162670USA

PATIENT
  Age: 42 Year
  Sex: Male
  Weight: 122.4712 kg

DRUGS (4)
  1. AZILECT [Suspect]
     Dosage: 1 MG (1 MG, 1 IN 1 D)
     Dates: start: 20060101
  2. STALEVO 100 [Concomitant]
  3. AMANTADINE HCL [Concomitant]
  4. TRIHYXYPHENIDYL HYDROCHLORIDE [Concomitant]

REACTIONS (7)
  - BLOOD PRESSURE INCREASED [None]
  - FALL [None]
  - FEELING ABNORMAL [None]
  - HEADACHE [None]
  - LOSS OF CONSCIOUSNESS [None]
  - SYNCOPE [None]
  - VOMITING [None]
